FAERS Safety Report 5477099-7 (Version None)
Quarter: 2007Q4

REPORT INFORMATION
  Report Type: 
  Country: None (occurrence: None)
  Receive Date: 20071003
  Receipt Date: 20071003
  Transmission Date: 20080405
  Serious: Yes (Death, Life-Threatening, Hospitalization)
  Sender: FDA-Public Use
  Company Number: None

PATIENT
  Age: 62 Year
  Sex: Female
  Weight: 79 kg

DRUGS (9)
  1. HEPARIN [Suspect]
     Indication: ACUTE MYOCARDIAL INFARCTION
     Dosage: BOLUS AND INFUSION  IV DRIP (DURATION: APPROX 8 - 12 HRS)
     Route: 041
  2. EPTIFIBATIDE [Suspect]
     Indication: ACUTE MYOCARDIAL INFARCTION
     Dosage: BOLUS AND INFUSION   (DURATION: APPROX 8 - 12 HRS)
     Route: 041
  3. ASPIRIN [Concomitant]
  4. CLOPIDOGREL [Concomitant]
  5. GLUCOTROL [Concomitant]
  6. HYDROCHLOROTHIAZIDE [Concomitant]
  7. RANITIDINE HCL [Concomitant]
  8. FISH OIL [Concomitant]
  9. VITAMINS [Concomitant]

REACTIONS (1)
  - HAEMORRHAGE INTRACRANIAL [None]
